FAERS Safety Report 6107483-X (Version None)
Quarter: 2009Q1

REPORT INFORMATION
  Report Type: 
  Country: None (occurrence: None)
  Receive Date: 20090309
  Receipt Date: 20090225
  Transmission Date: 20090719
  Serious: Yes (Other)
  Sender: FDA-Public Use
  Company Number: US-PFIZER INC-2009167836

PATIENT
  Age: 40 Year
  Sex: Female

DRUGS (2)
  1. NEURONTIN [Suspect]
     Indication: EPILEPSY
     Dosage: 3900 MG/DAY
     Dates: start: 20060815
  2. NEURONTIN [Suspect]
     Dosage: 3600 MG/DAY
     Dates: end: 20060815

REACTIONS (1)
  - ABORTION SPONTANEOUS [None]
